FAERS Safety Report 12212142 (Version 2)
Quarter: 2016Q2

REPORT INFORMATION
  Report Type: Spontaneous
  Country: FR (occurrence: FR)
  Receive Date: 20160325
  Receipt Date: 20160527
  Transmission Date: 20160815
  Serious: Yes (Hospitalization)
  Sender: FDA-Public Use
  Company Number: FR-ASTRAZENECA-2016SE30907

PATIENT
  Age: 847 Month
  Sex: Female

DRUGS (19)
  1. TARGOCID [Suspect]
     Active Substance: TEICOPLANIN
     Indication: MEDIASTINITIS
     Route: 042
     Dates: start: 20160122, end: 20160229
  2. ARIXTRA [Concomitant]
     Active Substance: FONDAPARINUX SODIUM
  3. INEXIUM [Suspect]
     Active Substance: ESOMEPRAZOLE
     Route: 048
     Dates: start: 20160108
  4. CIPROFLOXACINE [Suspect]
     Active Substance: CIPROFLOXACIN
     Indication: MEDIASTINITIS
     Route: 042
     Dates: start: 20160122, end: 20160229
  5. CIPROFLOXACINE [Suspect]
     Active Substance: CIPROFLOXACIN
     Indication: MEDIASTINITIS
     Dosage: MYLAN
     Route: 042
  6. DUOPLAVIN [Concomitant]
     Active Substance: ASPIRIN\CLOPIDOGREL
  7. RAMIPRIL. [Concomitant]
     Active Substance: RAMIPRIL
  8. GLYCERYL TRINITRATE [Concomitant]
     Active Substance: NITROGLYCERIN
  9. PIPERACILLINE TAZOBACTAM [Suspect]
     Active Substance: PIPERACILLIN SODIUM\TAZOBACTAM SODIUM
     Indication: MEDIASTINITIS
     Dosage: MYLAN
     Route: 042
  10. PIPERACILLINE TAZOBACTAM [Suspect]
     Active Substance: PIPERACILLIN SODIUM\TAZOBACTAM SODIUM
     Indication: MEDIASTINITIS
     Route: 042
     Dates: start: 20160122, end: 20160229
  11. AMLOR [Concomitant]
     Active Substance: AMLODIPINE BESYLATE
  12. FORTUM [Concomitant]
     Active Substance: CEFTAZIDIME
  13. CLAFORAN [Concomitant]
     Active Substance: CEFOTAXIME SODIUM
     Dates: start: 20160105, end: 20160122
  14. TAHOR [Concomitant]
     Active Substance: ATORVASTATIN CALCIUM
  15. TAVANIC [Concomitant]
     Active Substance: LEVOFLOXACIN
     Dates: start: 20160105, end: 20160122
  16. AMIKLIN [Concomitant]
     Active Substance: AMIKACIN SULFATE
  17. PIPERACILLINE TAZOBACTAM [Suspect]
     Active Substance: PIPERACILLIN SODIUM\TAZOBACTAM SODIUM
     Indication: MEDIASTINITIS
     Dosage: TAZOCILLINE
     Route: 042
     Dates: start: 20151228, end: 20160104
  18. ATENOLOL. [Concomitant]
     Active Substance: ATENOLOL
     Dates: start: 20151216
  19. NICORANDIL [Concomitant]
     Active Substance: NICORANDIL

REACTIONS (12)
  - Eosinophilia [Not Recovered/Not Resolved]
  - Rash pustular [Unknown]
  - Toxic skin eruption [Unknown]
  - Drug reaction with eosinophilia and systemic symptoms [Not Recovered/Not Resolved]
  - Pyrexia [Not Recovered/Not Resolved]
  - Pruritus [Not Recovered/Not Resolved]
  - Face oedema [Not Recovered/Not Resolved]
  - Epstein-Barr virus infection [Unknown]
  - Skin lesion [Unknown]
  - Rash maculo-papular [Not Recovered/Not Resolved]
  - Skin candida [Unknown]
  - Lymphadenopathy [Not Recovered/Not Resolved]

NARRATIVE: CASE EVENT DATE: 201602
